FAERS Safety Report 8581849-0 (Version None)
Quarter: 2012Q3

REPORT INFORMATION
  Report Type: 
  Country: None (occurrence: None)
  Receive Date: 20120809
  Receipt Date: 20120802
  Transmission Date: 20120928
  Serious: Yes (Other)
  Sender: FDA-Public Use
  Company Number: DK-JNJFOC-20120801323

PATIENT

DRUGS (23)
  1. CYCLOPHOSPHAMIDE [Suspect]
     Route: 065
  2. VINCRISTINE [Suspect]
     Dosage: DAY 1; CYCLE 5
     Route: 065
  3. PREDNISOLONE [Suspect]
     Indication: MANTLE CELL LYMPHOMA
     Dosage: ON DAYS 1-5; CYCLE 1
     Route: 065
  4. RITUXIMAB [Suspect]
     Dosage: IN CYCLE 6 ON DAY 9
     Route: 065
  5. MELPHALAN HYDROCHLORIDE [Suspect]
     Indication: MANTLE CELL LYMPHOMA
     Dosage: DAY 6; BEAM/C REGIMEN
     Route: 065
  6. CYCLOPHOSPHAMIDE [Suspect]
     Route: 065
  7. PREDNISOLONE [Suspect]
     Dosage: ON DAYS 1-5; CYCLE 5
     Route: 065
  8. DOXORUBICIN HYDROCHLORIDE [Suspect]
     Route: 042
  9. CYCLOPHOSPHAMIDE [Suspect]
     Indication: MANTLE CELL LYMPHOMA
     Dosage: DAY 1; CYCLE 3
     Route: 065
  10. CYTARABINE [Suspect]
     Dosage: 3 OR 2 G/M2, FOUR-3 HOUR INFUSIONS; CYCLE 2
     Route: 042
  11. CYTARABINE [Suspect]
     Route: 042
  12. ETOPOSIDE [Suspect]
     Indication: MANTLE CELL LYMPHOMA
     Dosage: ON DAYS 2-5; BEAM/C REGIMEN
     Route: 065
  13. DOXORUBICIN HYDROCHLORIDE [Suspect]
     Indication: MANTLE CELL LYMPHOMA
     Route: 042
  14. VINCRISTINE [Suspect]
     Indication: MANTLE CELL LYMPHOMA
     Dosage: DAY 1; CYCLE 3
     Route: 065
  15. VINCRISTINE [Suspect]
     Dosage: DAY 1; CYCLE 1
     Route: 065
  16. CYTARABINE [Suspect]
     Dosage: 3 OR 2 G/M2, FOUR-3 HOUR INFUSIONS;CYCLE 6
     Route: 042
  17. RITUXIMAB [Suspect]
     Dosage: GIVEN FROM CYCLE 5
     Route: 065
  18. CYCLOPHOSPHAMIDE [Suspect]
     Dosage: DAY 1; CYCLE 5
     Route: 065
  19. PREDNISOLONE [Suspect]
     Route: 065
  20. CYTARABINE [Suspect]
     Indication: MANTLE CELL LYMPHOMA
     Dosage: 3 OR 2 G/M2, FOUR-3 HOUR INFUSIONS;CYCLE 4
     Route: 042
  21. DOXORUBICIN HYDROCHLORIDE [Suspect]
     Route: 042
  22. RITUXIMAB [Suspect]
     Indication: MANTLE CELL LYMPHOMA
     Dosage: GIVEN ON DAY 1 FROM CYCLE 4
     Route: 065
  23. CARMUSTINE [Suspect]
     Indication: MANTLE CELL LYMPHOMA
     Dosage: ON DAY 1; BEAM/C REGIMEN
     Route: 065

REACTIONS (1)
  - MYELODYSPLASTIC SYNDROME [None]
